FAERS Safety Report 9459793 (Version 1)
Quarter: 2013Q3

REPORT INFORMATION
  Report Type: Spontaneous
  Country: BE (occurrence: BE)
  Receive Date: 20130815
  Receipt Date: 20130815
  Transmission Date: 20140515
  Serious: Yes (Hospitalization)
  Sender: FDA-Public Use
  Company Number: BE-ASTRAZENECA-2013SE62963

PATIENT
  Age: 65 Year
  Sex: Male

DRUGS (4)
  1. OMEPRAZOLE [Suspect]
  2. ESCITALOPRAM [Interacting]
     Indication: DEPRESSION
  3. TACROLIMUS [Interacting]
  4. SOTALOL [Interacting]
     Indication: ATRIAL FIBRILLATION

REACTIONS (3)
  - Drug interaction [Recovered/Resolved]
  - Long QT syndrome [Recovered/Resolved]
  - Torsade de pointes [Recovered/Resolved]
